FAERS Safety Report 11856831 (Version 1)
Quarter: 2015Q4

REPORT INFORMATION
  Report Type: Report from Study
  Country: US (occurrence: US)
  Receive Date: 20151221
  Receipt Date: 20151221
  Transmission Date: 20160305
  Serious: Yes (Other)
  Sender: FDA-Public Use
  Company Number: US-SA-2015SA213987

PATIENT
  Age: 25 Year
  Sex: Male

DRUGS (2)
  1. AUBAGIO [Suspect]
     Active Substance: TERIFLUNOMIDE
     Indication: MULTIPLE SCLEROSIS
     Route: 048
  2. AUBAGIO [Suspect]
     Active Substance: TERIFLUNOMIDE
     Indication: MULTIPLE SCLEROSIS
     Route: 048
     Dates: start: 20150901

REACTIONS (9)
  - Decreased appetite [Not Recovered/Not Resolved]
  - Dry throat [Not Recovered/Not Resolved]
  - Condition aggravated [Recovering/Resolving]
  - Cough [Not Recovered/Not Resolved]
  - Inappropriate schedule of drug administration [Unknown]
  - Expired product administered [Unknown]
  - Asthenia [Not Recovered/Not Resolved]
  - Hemiparesis [Recovering/Resolving]
  - Amnesia [Recovering/Resolving]

NARRATIVE: CASE EVENT DATE: 2015
